FAERS Safety Report 5097001-X (Version None)
Quarter: 2006Q3

REPORT INFORMATION
  Report Type: 
  Country: None (occurrence: None)
  Receive Date: 20060831
  Receipt Date: 20060821
  Transmission Date: 20061208
  Serious: Yes (Hospitalization)
  Sender: FDA-Public Use
  Company Number: 14642

PATIENT
  Age: 56 Year
  Sex: Male
  Weight: 79.8331 kg

DRUGS (33)
  1. FLUOROURACIL [Suspect]
     Indication: ENDOCRINE NEOPLASM
     Dosage: 800 MG/M2 FORTNIGHTLY IV
     Route: 042
  2. FLUOROURACIL [Suspect]
     Indication: ENDOCRINE PANCREATIC DISORDER
     Dosage: 800 MG/M2 FORTNIGHTLY IV
     Route: 042
  3. FLUOROURACIL [Suspect]
     Indication: ENDOCRINE NEOPLASM
     Dosage: 2400 MG FORTNIGHTLY IV
     Route: 042
     Dates: start: 20060502, end: 20060530
  4. FLUOROURACIL [Suspect]
     Indication: ENDOCRINE PANCREATIC DISORDER
     Dosage: 2400 MG FORTNIGHTLY IV
     Route: 042
     Dates: start: 20060502, end: 20060530
  5. FLUOROURACIL [Suspect]
     Indication: ENDOCRINE NEOPLASM
     Dosage: 400 MG/M2 FRTNIGHTLY IV
     Route: 042
     Dates: start: 20060502, end: 20060530
  6. FLUOROURACIL [Suspect]
     Indication: ENDOCRINE PANCREATIC DISORDER
     Dosage: 400 MG/M2 FRTNIGHTLY IV
     Route: 042
     Dates: start: 20060502, end: 20060530
  7. FLUOROURACIL [Suspect]
     Indication: ENDOCRINE NEOPLASM
     Dosage: 200 MG/M2 FORTNIGHTLY IV
     Route: 042
     Dates: start: 20060502, end: 20060530
  8. FLUOROURACIL [Suspect]
     Indication: ENDOCRINE PANCREATIC DISORDER
     Dosage: 200 MG/M2 FORTNIGHTLY IV
     Route: 042
     Dates: start: 20060502, end: 20060530
  9. FLUOROURACIL [Suspect]
     Indication: ENDOCRINE NEOPLASM
     Dates: start: 20060620
  10. FLUOROURACIL [Suspect]
     Indication: ENDOCRINE PANCREATIC DISORDER
     Dates: start: 20060620
  11. LEUCOVORIN [Suspect]
     Indication: ENDOCRINE NEOPLASM
     Dosage: 400 MG FORTNIGHTLY IV
     Route: 042
     Dates: start: 20060502, end: 20060530
  12. LEUCOVORIN [Suspect]
     Indication: ENDOCRINE PANCREATIC DISORDER
     Dosage: 400 MG FORTNIGHTLY IV
     Route: 042
     Dates: start: 20060502, end: 20060530
  13. LEUCOVORIN [Suspect]
     Indication: ENDOCRINE NEOPLASM
     Dosage: 200 MG/M2 FORTNIGHTLY IV
     Route: 042
     Dates: start: 20060502, end: 20060530
  14. LEUCOVORIN [Suspect]
     Indication: ENDOCRINE PANCREATIC DISORDER
     Dosage: 200 MG/M2 FORTNIGHTLY IV
     Route: 042
     Dates: start: 20060502, end: 20060530
  15. OXALIPLATIN [Suspect]
     Indication: ENDOCRINE NEOPLASM
     Dosage: 85 MG/M2 FORTNIGHTLY IV
     Route: 042
     Dates: start: 20060502, end: 20060530
  16. OXALIPLATIN [Suspect]
     Indication: ENDOCRINE PANCREATIC DISORDER
     Dosage: 85 MG/M2 FORTNIGHTLY IV
     Route: 042
     Dates: start: 20060502, end: 20060530
  17. OXALIPLATIN [Suspect]
     Indication: ENDOCRINE NEOPLASM
     Dosage: 85 MG/M2 FORTNIGHTLY IV
     Route: 042
     Dates: start: 20060502, end: 20060530
  18. OXALIPLATIN [Suspect]
     Indication: ENDOCRINE PANCREATIC DISORDER
     Dosage: 85 MG/M2 FORTNIGHTLY IV
     Route: 042
     Dates: start: 20060502, end: 20060530
  19. OXALIPLATIN [Suspect]
     Indication: ENDOCRINE NEOPLASM
     Dates: start: 20060620
  20. OXALIPLATIN [Suspect]
     Indication: ENDOCRINE PANCREATIC DISORDER
     Dates: start: 20060620
  21. AVASTIN [Suspect]
     Indication: ENDOCRINE NEOPLASM
     Dosage: 400 MG PER_CYCLE IV
     Route: 042
     Dates: start: 20060502, end: 20060530
  22. AVASTIN [Suspect]
     Indication: ENDOCRINE PANCREATIC DISORDER
     Dosage: 400 MG PER_CYCLE IV
     Route: 042
     Dates: start: 20060502, end: 20060530
  23. DEXAMTHASONE [Concomitant]
  24. KYTRIL [Concomitant]
  25. ACETAMINOPHEN [Concomitant]
  26. OMODIUM  /00384302/ [Concomitant]
  27. ATIVAN [Concomitant]
  28. VICODIN [Concomitant]
  29. LISINOPRIL [Concomitant]
  30. AMLODIPINE BESYLATE [Concomitant]
  31. ASPIRIN [Concomitant]
  32. FEXOFENDAINE HYDROCHLORIDE [Concomitant]
  33. OMEPRAZOLE [Concomitant]

REACTIONS (10)
  - ABDOMINAL PAIN [None]
  - DIARRHOEA [None]
  - ENTERITIS [None]
  - HAEMATOCRIT DECREASED [None]
  - HAEMOGLOBIN DECREASED [None]
  - LUNG NEOPLASM [None]
  - NEUTROPENIA [None]
  - PLATELET COUNT INCREASED [None]
  - PYREXIA [None]
  - SMALL INTESTINAL OBSTRUCTION [None]
